FAERS Safety Report 6895024-9 (Version None)
Quarter: 2010Q3

REPORT INFORMATION
  Report Type: 
  Country: None (occurrence: None)
  Receive Date: 20100802
  Receipt Date: 20100719
  Transmission Date: 20110219
  Serious: Yes (Hospitalization, Other)
  Sender: FDA-Public Use
  Company Number: US-ELI_LILLY_AND_COMPANY-US201007004627

PATIENT
  Sex: Male

DRUGS (3)
  1. STRATTERA [Suspect]
     Indication: ATTENTION DEFICIT/HYPERACTIVITY DISORDER
     Dosage: 100 MG, DAILY (1/D)
     Dates: start: 20040201
  2. TENEX [Concomitant]
  3. SEROQUEL [Concomitant]

REACTIONS (5)
  - BRAIN ABSCESS [None]
  - PYREXIA [None]
  - SEROTONIN SYNDROME [None]
  - SINUSITIS [None]
  - STAPHYLOCOCCAL INFECTION [None]
